FAERS Safety Report 18158950 (Version 2)
Quarter: 2020Q3

REPORT INFORMATION
  Report Type: Spontaneous
  Country: CN (occurrence: CN)
  Receive Date: 20200817
  Receipt Date: 20200818
  Transmission Date: 20201103
  Serious: Yes (Life-Threatening, Hospitalization)
  Sender: FDA-Public Use
  Company Number: CN-PFIZER INC-2020313216

PATIENT
  Age: 48 Year
  Sex: Female
  Weight: 40 kg

DRUGS (1)
  1. ANZATAX (PACLITAXEL) [Suspect]
     Active Substance: PACLITAXEL
     Indication: ENDOMETRIAL CANCER STAGE III
     Dosage: 60 MG, WEEKLY [ONCE A WEEK (QW)]
     Route: 041
     Dates: start: 20200703, end: 20200703

REACTIONS (8)
  - Vomiting [Recovering/Resolving]
  - Rash maculo-papular [Recovering/Resolving]
  - Chest discomfort [Recovering/Resolving]
  - Drug hypersensitivity [Recovering/Resolving]
  - Off label use [Unknown]
  - Product use in unapproved indication [Unknown]
  - Suffocation feeling [Recovering/Resolving]
  - Dyspnoea [Recovering/Resolving]

NARRATIVE: CASE EVENT DATE: 20200703
